FAERS Safety Report 10382556 (Version 1)
Quarter: 2014Q3

REPORT INFORMATION
  Report Type: Spontaneous
  Country: US (occurrence: US)
  Receive Date: 20140813
  Receipt Date: 20140813
  Transmission Date: 20150326
  Serious: No
  Sender: FDA-Public Use
  Company Number: US-SANOFI-AVENTIS-2013SA088748

PATIENT
  Age: 58 Year
  Sex: Female
  Weight: 67 kg

DRUGS (10)
  1. LOSARTAN [Concomitant]
     Active Substance: LOSARTAN
     Indication: BLOOD PRESSURE
     Route: 065
     Dates: start: 1995
  2. MULTAQ [Suspect]
     Active Substance: DRONEDARONE
     Route: 048
     Dates: start: 20130726, end: 20130731
  3. XARELTO [Concomitant]
     Active Substance: RIVAROXABAN
     Indication: THROMBOSIS PROPHYLAXIS
     Route: 065
     Dates: start: 20130701
  4. LOSARTAN [Concomitant]
     Active Substance: LOSARTAN
     Indication: MITRAL VALVE DISEASE
     Route: 065
     Dates: start: 1995
  5. MULTAQ [Suspect]
     Active Substance: DRONEDARONE
     Indication: ATRIAL FIBRILLATION
     Route: 048
     Dates: start: 20130726, end: 20130731
  6. MULTAQ [Suspect]
     Active Substance: DRONEDARONE
     Indication: ATRIAL FIBRILLATION
     Route: 048
     Dates: start: 20130726, end: 20130731
  7. DIGOXIN. [Concomitant]
     Active Substance: DIGOXIN
     Indication: CARDIAC DISORDER
     Route: 065
     Dates: start: 20130701
  8. VITAMINS [Concomitant]
     Active Substance: VITAMINS
     Indication: VITAMIN SUPPLEMENTATION
     Route: 065
  9. NEXIUM [Concomitant]
     Active Substance: ESOMEPRAZOLE MAGNESIUM
     Indication: GASTROOESOPHAGEAL REFLUX DISEASE
     Route: 065
  10. MULTAQ [Suspect]
     Active Substance: DRONEDARONE
     Route: 048
     Dates: start: 20130726, end: 20130731

REACTIONS (9)
  - Abdominal pain upper [Recovered/Resolved]
  - Diarrhoea [Recovered/Resolved]
  - Dyspepsia [Recovered/Resolved]
  - Nausea [Recovered/Resolved]
  - Malaise [Recovered/Resolved]
  - Photophobia [Recovered/Resolved]
  - Visual impairment [Recovered/Resolved]
  - Fatigue [Recovered/Resolved]
  - Bed rest [Recovered/Resolved]

NARRATIVE: CASE EVENT DATE: 20130727
